FAERS Safety Report 7137698-3 (Version None)
Quarter: 2010Q4

REPORT INFORMATION
  Report Type: 
  Country: None (occurrence: None)
  Receive Date: 20101119
  Receipt Date: 20101110
  Transmission Date: 20110411
  Serious: Yes (Other)
  Sender: FDA-Public Use
  Company Number: MC201000353

PATIENT
  Age: 4 Year
  Sex: Male

DRUGS (2)
  1. ANGIOMAX [Suspect]
     Indication: PERCUTANEOUS CORONARY INTERVENTION
  2. CLOPIDOGREL [Concomitant]

REACTIONS (4)
  - ANGINA PECTORIS [None]
  - CARDIAC PROCEDURE COMPLICATION [None]
  - CORONARY ARTERY STENOSIS [None]
  - IN-STENT CORONARY ARTERY RESTENOSIS [None]
